FAERS Safety Report 19178122 (Version 3)
Quarter: 2021Q2

REPORT INFORMATION
  Report Type: Report from Study
  Country: US (occurrence: US)
  Receive Date: 20210426
  Receipt Date: 20210525
  Transmission Date: 20210717
  Serious: No
  Sender: FDA-Public Use
  Company Number: US-AGIOS-2104US02690

PATIENT

DRUGS (3)
  1. TIBSOVO [Suspect]
     Active Substance: IVOSIDENIB
     Indication: CHOLANGIOCARCINOMA
  2. TIBSOVO [Suspect]
     Active Substance: IVOSIDENIB
     Indication: METASTASES TO LIVER
     Dosage: 250 MILLIGRAM, 2 TABLETS (500 MG), QD
     Route: 048
  3. TIBSOVO [Suspect]
     Active Substance: IVOSIDENIB
     Indication: CHOLANGIOCARCINOMA

REACTIONS (5)
  - Peripheral swelling [Unknown]
  - Fatigue [Unknown]
  - Urine output decreased [Unknown]
  - Dizziness [Recovered/Resolved with Sequelae]
  - Off label use [Unknown]
